FAERS Safety Report 13657576 (Version 2)
Quarter: 2017Q3

REPORT INFORMATION
  Report Type: Report from Study
  Country: US (occurrence: US)
  Receive Date: 20170615
  Receipt Date: 20170718
  Transmission Date: 20171127
  Serious: Yes (Death)
  Sender: FDA-Public Use
  Company Number: GXBR2017US001943

PATIENT
  Sex: Female

DRUGS (2)
  1. ZARXIO [Suspect]
     Active Substance: FILGRASTIM-SNDZ
     Indication: AGRANULOCYTOSIS
  2. ZARXIO [Suspect]
     Active Substance: FILGRASTIM-SNDZ
     Indication: CONNECTIVE TISSUE NEOPLASM
     Dosage: UNK DF, UNK
     Route: 065
     Dates: start: 20170223

REACTIONS (2)
  - Synovial sarcoma [Fatal]
  - Disease progression [Fatal]
